FAERS Safety Report 4653212-6 (Version None)
Quarter: 2005Q2

REPORT INFORMATION
  Report Type: 
  Country: None (occurrence: None)
  Receive Date: 20050503
  Receipt Date: 20050429
  Transmission Date: 20051028
  Serious: Yes (Hospitalization)
  Sender: FDA-Public Use
  Company Number: Q05-012

PATIENT
  Age: 71 Year
  Sex: Male
  Weight: 77.0208 kg

DRUGS (16)
  1. PROCRIT (ORTHO-BIOTEC) [Suspect]
     Indication: ANAEMIA
     Dosage: 60,000 IU SQ WEEKLY
     Route: 058
     Dates: start: 20050404
  2. SAMARIUM SM-153 (QUADRAMET) [Suspect]
     Indication: METASTASES TO BONE
     Dosage: SAMARIUM SM-153 76.5 MCI IV
     Route: 042
     Dates: start: 20050330
  3. HYDROCODONE BITARTRATE [Concomitant]
  4. KYTRIL [Concomitant]
  5. POLYETH. GLYCOL [Concomitant]
  6. ULTRACET [Concomitant]
  7. ACETAMINOPHEN [Concomitant]
  8. INSULIN [Concomitant]
  9. MULTI-VITAMINS [Concomitant]
  10. DEXAMETHASONE [Concomitant]
  11. BENADRYL [Concomitant]
  12. FILGRASTIM [Concomitant]
  13. LORAZEPAM [Concomitant]
  14. ONDANSETRON [Concomitant]
  15. TOBRAMYCIN [Concomitant]
  16. VANCOMYCIN [Concomitant]

REACTIONS (4)
  - BONE PAIN [None]
  - CARDIO-RESPIRATORY ARREST [None]
  - PYELONEPHRITIS [None]
  - SEPSIS [None]
